FAERS Safety Report 4660545-6 (Version None)
Quarter: 2005Q2

REPORT INFORMATION
  Report Type: 
  Country: None (occurrence: None)
  Receive Date: 20050427
  Receipt Date: 20050214
  Transmission Date: 20051028
  Serious: No
  Sender: FDA-Public Use
  Company Number: 212443

PATIENT
  Age: 48 Year
  Sex: Female
  Weight: 94.8 kg

DRUGS (15)
  1. XOLAIR [Suspect]
     Indication: ASTHMA
     Dosage: 375 MG
     Dates: start: 20041108, end: 20050111
  2. METHOTREXATE [Suspect]
     Dosage: 10 MG,QD
  3. ALBUTEROL (ALBUTEROL SULFATE, ALBUTEROL) [Concomitant]
  4. CELEXA [Concomitant]
  5. IMITREX [Concomitant]
  6. LASIX [Concomitant]
  7. MEDROL [Concomitant]
  8. MIACALCIN (SALCATONIN) [Concomitant]
  9. MYCELEX [Concomitant]
  10. NEXIUM [Concomitant]
  11. PROGESTERONE CREAM (PROGESTERONE) [Concomitant]
  12. TESTOSTERONE CREAM (TESTOSTERONE) [Concomitant]
  13. SINGULAIR [Concomitant]
  14. XOPENEX [Concomitant]
  15. ESTROGEN (ESTROGENS) [Concomitant]

REACTIONS (2)
  - ARTHRALGIA [None]
  - OEDEMA PERIPHERAL [None]
